FAERS Safety Report 8987679 (Version 2)
Quarter: 2013Q2

REPORT INFORMATION
  Report Type: Report from Study
  Country: BR (occurrence: BR)
  Receive Date: 20121227
  Receipt Date: 20130402
  Transmission Date: 20140414
  Serious: Yes (Hospitalization, Disabling, Other)
  Sender: FDA-Public Use
  Company Number: BR-BAYER-2012-132318

PATIENT
  Age: 43 Year
  Sex: Female

DRUGS (4)
  1. INTERFERON BETA - 1B [Suspect]
     Indication: MULTIPLE SCLEROSIS
     Dosage: 1 ML, QOD
     Route: 058
     Dates: start: 201209
  2. INTERFERON BETA - 1B [Suspect]
     Indication: MULTIPLE SCLEROSIS
     Dosage: UNK
     Dates: end: 2012
  3. PURAN T4 [Concomitant]
     Indication: HYPOTHYROIDISM
     Dosage: 1 DF, QD
     Route: 048
     Dates: start: 2000
  4. PARACETAMOL [Concomitant]
     Indication: UNEVALUABLE EVENT
     Dosage: 2 DF, QOD
     Route: 048
     Dates: start: 2001

REACTIONS (7)
  - Multiple sclerosis relapse [Unknown]
  - Herpes virus infection [Unknown]
  - Infection [Unknown]
  - Drug ineffective [None]
  - Fatigue [Not Recovered/Not Resolved]
  - Malaise [Not Recovered/Not Resolved]
  - Mobility decreased [Unknown]
